FAERS Safety Report 9407153 (Version 3)
Quarter: 2013Q4

REPORT INFORMATION
  Report Type: Spontaneous
  Country: JP (occurrence: JP)
  Receive Date: 20130718
  Receipt Date: 20131223
  Transmission Date: 20140711
  Serious: Yes (Hospitalization, Other)
  Sender: FDA-Public Use
  Company Number: PHHY2012JP120790

PATIENT
  Age: 77 Year
  Sex: Male
  Weight: 56 kg

DRUGS (6)
  1. ZOMETA [Suspect]
     Indication: METASTASES TO BONE
     Dosage: UNK UKN, UNK
     Route: 041
     Dates: end: 201207
  2. ZOMETA [Suspect]
     Dosage: UNK UKN, UNK
     Route: 041
     Dates: start: 201209, end: 20121129
  3. DOCETAXEL [Suspect]
     Dosage: UNK UKN, UNK
     Dates: end: 201207
  4. TAXOTERE [Concomitant]
     Dosage: UNK
     Dates: start: 201209, end: 20121126
  5. CALCICOL [Concomitant]
     Dosage: UNK UKN, UNK
     Route: 041
  6. CHEMOTHERAPEUTICS [Concomitant]
     Dosage: UNK UKN, UNK

REACTIONS (25)
  - Decreased appetite [Recovered/Resolved]
  - Rhabdomyolysis [Recovering/Resolving]
  - Hypomagnesaemia [Recovering/Resolving]
  - Hypocalcaemia [Recovering/Resolving]
  - Hypophosphataemia [Recovering/Resolving]
  - Quadriplegia [Unknown]
  - Hypokinesia [Recovering/Resolving]
  - Aspartate aminotransferase increased [Unknown]
  - Blood lactate dehydrogenase increased [Unknown]
  - Blood alkaline phosphatase increased [Unknown]
  - Blood creatine phosphokinase increased [Unknown]
  - C-reactive protein increased [Unknown]
  - Fall [Unknown]
  - Muscular weakness [Unknown]
  - Gait disturbance [Unknown]
  - Asthenia [Unknown]
  - White blood cell count increased [Unknown]
  - Haematocrit decreased [Unknown]
  - Protein total decreased [Unknown]
  - Blood albumin decreased [Unknown]
  - Blood potassium decreased [Unknown]
  - Hypoaesthesia oral [Recovered/Resolved]
  - Hyperventilation [Unknown]
  - Pyrexia [Unknown]
  - Haemoglobin decreased [Unknown]
